FAERS Safety Report 4592659-3 (Version None)
Quarter: 2005Q1

REPORT INFORMATION
  Report Type: 
  Country: None (occurrence: None)
  Receive Date: 20050218
  Receipt Date: 20050210
  Transmission Date: 20050727
  Serious: Yes (Death, Hospitalization)
  Sender: FDA-Public Use
  Company Number: 2005CG00086

PATIENT
  Age: 53 Year
  Sex: Female

DRUGS (5)
  1. OMEPRAZOLE [Suspect]
     Dosage: 20 MG DAILY PO
     Route: 048
  2. URBANYL [Suspect]
     Dosage: 10 MG BID PO
     Route: 048
  3. MUCOMYST [Suspect]
     Dosage: 200 MG TID PO
     Route: 048
  4. MEDROL [Suspect]
     Dosage: 64 MG DAILY PO
     Route: 048
     Dates: start: 20030315
  5. LAMICTAL [Suspect]
     Dosage: 1000 MG BID PO
     Route: 048

REACTIONS (4)
  - ACUTE RESPIRATORY DISTRESS SYNDROME [None]
  - DIABETES MELLITUS INADEQUATE CONTROL [None]
  - PNEUMOCYSTIS JIROVECI PNEUMONIA [None]
  - RESPIRATORY FAILURE [None]
